FAERS Safety Report 23467696 (Version 1)
Quarter: 2024Q1

REPORT INFORMATION
  Report Type: Spontaneous
  Country: PL (occurrence: PL)
  Receive Date: 20240201
  Receipt Date: 20240201
  Transmission Date: 20240409
  Serious: Yes (Hospitalization, Other)
  Sender: FDA-Public Use
  Company Number: PL-MLMSERVICE-20240118-4785660-1

PATIENT
  Age: 5 Year
  Sex: Male

DRUGS (3)
  1. IBUPROFEN [Suspect]
     Active Substance: IBUPROFEN
     Indication: Varicella
     Dosage: 5 MG/KG IN 3 DOSES DAILY FOR 3 DAYS
     Route: 065
  2. BENZOCAINE\MENTHOL\ZINC OXIDE [Suspect]
     Active Substance: BENZOCAINE\MENTHOL\ZINC OXIDE
     Indication: Varicella
     Dosage: UNK
     Route: 065
  3. ACYCLOVIR [Concomitant]
     Active Substance: ACYCLOVIR
     Indication: Varicella
     Route: 042

REACTIONS (4)
  - Deep vein thrombosis [Not Recovered/Not Resolved]
  - Soft tissue infection [Not Recovered/Not Resolved]
  - Superinfection bacterial [Recovered/Resolved]
  - Streptococcal sepsis [Recovered/Resolved]
